FAERS Safety Report 6103487-1 (Version None)
Quarter: 2009Q1

REPORT INFORMATION
  Report Type: 
  Country: None (occurrence: None)
  Receive Date: 20090305
  Receipt Date: 20090227
  Transmission Date: 20090719
  Serious: Yes (Hospitalization)
  Sender: FDA-Public Use
  Company Number: US-WYE-H08387609

PATIENT
  Sex: Male
  Weight: 90.72 kg

DRUGS (3)
  1. RAPAMUNE [Suspect]
     Indication: PROPHYLAXIS AGAINST TRANSPLANT REJECTION
     Route: 048
     Dates: start: 20080409, end: 20080514
  2. RAPAMUNE [Suspect]
     Route: 048
     Dates: start: 20080515
  3. PROGRAF [Concomitant]
     Indication: PROPHYLAXIS AGAINST TRANSPLANT REJECTION
     Dates: start: 20090207

REACTIONS (2)
  - ACIDOSIS [None]
  - HYPOGLYCAEMIA [None]
